FAERS Safety Report 21618434 (Version 2)
Quarter: 2022Q4

REPORT INFORMATION
  Report Type: Report from Study
  Country: MX (occurrence: MX)
  Receive Date: 20221119
  Receipt Date: 20221128
  Transmission Date: 20230112
  Serious: Yes (Life-Threatening, Hospitalization, Other)
  Sender: FDA-Public Use
  Company Number: MX-002147023-NVSC2022MX260443

PATIENT
  Sex: Female
  Weight: 65 kg

DRUGS (2)
  1. ELTROMBOPAG OLAMINE [Suspect]
     Active Substance: ELTROMBOPAG OLAMINE
     Indication: Spinal cord disorder
     Dosage: 2 DOSAGE FORM, QD (50 MG)
     Route: 048
     Dates: start: 202207, end: 202209
  2. ELTROMBOPAG OLAMINE [Suspect]
     Active Substance: ELTROMBOPAG OLAMINE
     Indication: Platelet count abnormal

REACTIONS (10)
  - Poisoning [Unknown]
  - Coagulopathy [Unknown]
  - Fibrin D dimer increased [Unknown]
  - Movement disorder [Not Recovered/Not Resolved]
  - Gastric haemorrhage [Unknown]
  - Thrombosis [Unknown]
  - Haemoglobin decreased [Unknown]
  - Platelet count decreased [Unknown]
  - Memory impairment [Unknown]
  - General physical health deterioration [Unknown]
